FAERS Safety Report 6445103-5 (Version None)
Quarter: 2009Q4

REPORT INFORMATION
  Report Type: 
  Country: None (occurrence: None)
  Receive Date: 20091118
  Receipt Date: 20091113
  Transmission Date: 20100525
  Serious: Yes (Hospitalization)
  Sender: FDA-Public Use
  Company Number: US-BRISTOL-MYERS SQUIBB COMPANY-14857247

PATIENT
  Age: 65 Year
  Sex: Male
  Weight: 61 kg

DRUGS (4)
  1. ERBITUX [Suspect]
     Indication: NON-SMALL CELL LUNG CANCER
     Dosage: RECENT INFUSION:02NOV09
     Dates: start: 20090824
  2. TAXOL [Suspect]
     Indication: NON-SMALL CELL LUNG CANCER
     Dosage: START DATE OF COURSE ASSOCIATED WITH EXPEDITED REPORT:02NOV09
     Dates: start: 20090824
  3. CARBOPLATIN [Suspect]
     Indication: NON-SMALL CELL LUNG CANCER
     Dosage: START DATE OF COURSE ASSOCIATED WITH EXPEDITED REPORT:02NOV09
     Dates: start: 20090824
  4. RADIATION THERAPY [Suspect]
     Indication: NON-SMALL CELL LUNG CANCER
     Dosage: 1DF= 60GY
     Dates: start: 20090801, end: 20091012

REACTIONS (3)
  - BRONCHOPNEUMONIA [None]
  - DEHYDRATION [None]
  - PNEUMONITIS [None]
